FAERS Safety Report 19938808 (Version 1)
Quarter: 2021Q4

REPORT INFORMATION
  Report Type: Report from Study
  Country: None (occurrence: PR)
  Receive Date: 20211011
  Receipt Date: 20211011
  Transmission Date: 20220303
  Serious: Yes (Other)
  Sender: FDA-Public Use
  Company Number: PR-ABBVIE-21K-131-4114173-00

PATIENT
  Age: 66 Year
  Sex: Female
  Weight: 66.74 kg

DRUGS (5)
  1. HUMIRA [Suspect]
     Active Substance: ADALIMUMAB
     Indication: Rheumatoid arthritis
     Route: 058
     Dates: start: 20200806, end: 2021
  2. HUMIRA [Suspect]
     Active Substance: ADALIMUMAB
     Indication: Psoriasis
  3. MODERNA COVID-19 VACCINE [Concomitant]
     Active Substance: CX-024414
     Indication: COVID-19 immunisation
     Dosage: 1ST DOSE
     Route: 030
     Dates: start: 20210302, end: 20210302
  4. MODERNA COVID-19 VACCINE [Concomitant]
     Active Substance: CX-024414
     Dosage: 2ND DOSE
     Route: 030
     Dates: start: 20210330, end: 20210330
  5. MODERNA COVID-19 VACCINE [Concomitant]
     Active Substance: CX-024414
     Dosage: 3RD DOSE
     Route: 030
     Dates: start: 20210919, end: 20210919

REACTIONS (6)
  - Humerus fracture [Not Recovered/Not Resolved]
  - Hyperkeratosis [Unknown]
  - Fall [Not Recovered/Not Resolved]
  - Urinary tract infection [Recovered/Resolved]
  - Bacterial infection [Recovered/Resolved]
  - Abscess [Recovered/Resolved]

NARRATIVE: CASE EVENT DATE: 20210801
